FAERS Safety Report 15446150 (Version 1)
Quarter: 2018Q3

REPORT INFORMATION
  Report Type: Spontaneous
  Country: US (occurrence: US)
  Receive Date: 20180928
  Receipt Date: 20180928
  Transmission Date: 20181010
  Serious: No
  Sender: FDA-Public Use
  Company Number: US-AMGEN-USASP2018059450

PATIENT
  Age: 76 Year
  Sex: Female

DRUGS (2)
  1. CLINDAMYCIN. [Concomitant]
     Active Substance: CLINDAMYCIN
     Dosage: UNK, BID FOR 7 DAYS
  2. PROLIA [Suspect]
     Active Substance: DENOSUMAB
     Indication: OSTEOPOROSIS POSTMENOPAUSAL
     Dosage: UNK
     Route: 030
     Dates: start: 20180423

REACTIONS (3)
  - Injection site swelling [Unknown]
  - Incorrect route of drug administration [Unknown]
  - Injection site warmth [Unknown]

NARRATIVE: CASE EVENT DATE: 201804
